FAERS Safety Report 10599754 (Version 1)
Quarter: 2014Q4

REPORT INFORMATION
  Report Type: Spontaneous
  Country: US (occurrence: US)
  Receive Date: 20141121
  Receipt Date: 20141121
  Transmission Date: 20150529
  Serious: Yes (Hospitalization, Other)
  Sender: FDA-Public Use
  Company Number: US-ELI_LILLY_AND_COMPANY-US201411004618

PATIENT
  Age: 61 Year
  Sex: Male

DRUGS (4)
  1. AXIRON [Suspect]
     Active Substance: TESTOSTERONE
     Indication: ANDROGEN DEFICIENCY
     Dosage: UNK UNK, QD
     Route: 065
     Dates: start: 2012
  2. HYDROCORTISONE. [Concomitant]
     Active Substance: HYDROCORTISONE
     Dosage: UNK, UNKNOWN
     Route: 065
  3. SYNTHROID [Concomitant]
     Active Substance: LEVOTHYROXINE SODIUM
     Dosage: UNK, UNKNOWN
     Route: 065
  4. AXIRON [Suspect]
     Active Substance: TESTOSTERONE
     Dosage: 90 MG, UNK
     Route: 065

REACTIONS (6)
  - Nervous system disorder [Unknown]
  - Arthropod bite [Unknown]
  - Weight decreased [Unknown]
  - Staphylococcal infection [Unknown]
  - Seizure [Unknown]
  - Clostridium difficile colitis [Unknown]

NARRATIVE: CASE EVENT DATE: 201310
